FAERS Safety Report 16426368 (Version 1)
Quarter: 2019Q2

REPORT INFORMATION
  Report Type: Spontaneous
  Country: DE (occurrence: DE)
  Receive Date: 20190613
  Receipt Date: 20190613
  Transmission Date: 20190711
  Serious: Yes (Other)
  Sender: FDA-Public Use
  Company Number: DE-JNJFOC-20190616735

PATIENT
  Sex: Male

DRUGS (2)
  1. FENTANYL. [Suspect]
     Active Substance: FENTANYL
     Indication: FRACTURE
     Route: 065
     Dates: start: 201904
  2. FENTANYL. [Suspect]
     Active Substance: FENTANYL
     Indication: FRACTURE
     Route: 065

REACTIONS (4)
  - Tachycardia [Unknown]
  - Drug withdrawal syndrome [Unknown]
  - Discomfort [Unknown]
  - Dyspnoea [Unknown]
